FAERS Safety Report 15479166 (Version 8)
Quarter: 2019Q1

REPORT INFORMATION
  Report Type: Report from Study
  Country: TN (occurrence: TN)
  Receive Date: 20181009
  Receipt Date: 20190327
  Transmission Date: 20190417
  Serious: Yes (Hospitalization)
  Sender: FDA-Public Use
  Company Number: TN-ROCHE-2135340

PATIENT
  Age: 30 Year
  Sex: Female
  Weight: 53 kg

DRUGS (35)
  1. ATARAX [Concomitant]
     Active Substance: HYDROXYZINE HYDROCHLORIDE
     Indication: PREMEDICATION
     Route: 065
     Dates: start: 20131218
  2. FAMODINE [Concomitant]
     Active Substance: FAMOTIDINE
     Dosage: ADJUNCTIVE DRUG TO CORTICOTHERAPY
     Route: 048
     Dates: start: 20130422, end: 20130424
  3. FLAGYL [Concomitant]
     Active Substance: METRONIDAZOLE\METRONIDAZOLE HYDROCHLORIDE
     Indication: DIARRHOEA
     Route: 048
     Dates: start: 20150602, end: 20150602
  4. NIFUROXAZIDE [Concomitant]
     Active Substance: NIFUROXAZIDE
     Indication: DIARRHOEA
     Route: 048
     Dates: start: 20180326, end: 20180402
  5. OCRELIZUMAB. [Suspect]
     Active Substance: OCRELIZUMAB
     Dosage: WEEK 24
     Route: 042
     Dates: start: 20130702, end: 20130702
  6. OCRELIZUMAB. [Suspect]
     Active Substance: OCRELIZUMAB
     Dosage: OLE-WEEK 2?ADMINISTERED AS 300 MG ON DAY 15 OF CYCLE 5, FOLLOWED BY 600 MG SINGLE INFUSION FOR EACH
     Route: 042
     Dates: start: 20150113, end: 20150113
  7. OCRELIZUMAB. [Suspect]
     Active Substance: OCRELIZUMAB
     Dosage: OLE-WEEK 168
     Route: 042
     Dates: start: 20180326
  8. MOTILIUM [Concomitant]
     Active Substance: DOMPERIDONE
     Indication: DIARRHOEA
     Route: 048
     Dates: start: 20150602, end: 20150602
  9. OCRELIZUMAB. [Suspect]
     Active Substance: OCRELIZUMAB
     Indication: RELAPSING-REMITTING MULTIPLE SCLEROSIS
     Dosage: OLE-WEEK 0?ADMINISTERED AS 300 MG (260 ML) ON DAY 1 OF CYCLE 5, FOLLOWED BY 600 MG SINGLE INFUSION F
     Route: 042
     Dates: start: 20141230, end: 20141230
  10. METHYLPREDNISOLONE. [Concomitant]
     Active Substance: METHYLPREDNISOLONE
     Indication: PREMEDICATION
     Dosage: SUBSEQUENTLY RECEIVED ON 14/FEB/2013, 02/JUL/2013, 18/DEC/2013, 05/JUN/2014, 30/DEC/2014, 13/JAN/201
     Route: 065
     Dates: start: 20130116
  11. KCL [Concomitant]
     Active Substance: POTASSIUM CHLORIDE
     Dosage: ADJUNCTIVE DRUG TO CORTICOTHERAPY
     Route: 048
     Dates: start: 20130422, end: 20130424
  12. PHLOROGLUCINOL [Concomitant]
     Active Substance: PHLOROGLUCINOL
     Indication: DIARRHOEA
     Route: 048
     Dates: start: 20150602, end: 20150602
  13. SOLU-MEDROL [Concomitant]
     Active Substance: METHYLPREDNISOLONE SODIUM SUCCINATE
     Indication: MULTIPLE SCLEROSIS RELAPSE
     Route: 065
     Dates: start: 20130422, end: 20130424
  14. PLACEBO [Suspect]
     Active Substance: UNSPECIFIED INGREDIENT
     Route: 058
     Dates: start: 20141118, end: 20141216
  15. OCRELIZUMAB. [Suspect]
     Active Substance: OCRELIZUMAB
     Dosage: OLE-WEEK 48
     Route: 042
     Dates: start: 20151210, end: 20151210
  16. OCRELIZUMAB. [Suspect]
     Active Substance: OCRELIZUMAB
     Dosage: OLE-WEEK 72
     Route: 042
     Dates: start: 20160517, end: 20160517
  17. OCRELIZUMAB. [Suspect]
     Active Substance: OCRELIZUMAB
     Dosage: OLE-WEEK 96
     Route: 042
     Dates: start: 20161102, end: 20161102
  18. OCRELIZUMAB. [Suspect]
     Active Substance: OCRELIZUMAB
     Dosage: OLE-WEEK 120
     Route: 042
     Dates: start: 20170418, end: 20170418
  19. OCRELIZUMAB. [Suspect]
     Active Substance: OCRELIZUMAB
     Dosage: OLE-WEEK 144
     Route: 042
     Dates: start: 20171003, end: 20171003
  20. VITAMIN C [Concomitant]
     Active Substance: ASCORBIC ACID
     Route: 065
     Dates: start: 20181219
  21. PHLOROGLUCINOL [Concomitant]
     Active Substance: PHLOROGLUCINOL
     Route: 065
     Dates: start: 20181026, end: 20181031
  22. PLACEBO [Suspect]
     Active Substance: UNSPECIFIED INGREDIENT
     Indication: RELAPSING-REMITTING MULTIPLE SCLEROSIS
     Route: 058
     Dates: start: 20130116
  23. FLAGYL [Concomitant]
     Active Substance: METRONIDAZOLE\METRONIDAZOLE HYDROCHLORIDE
     Route: 048
     Dates: start: 20150605, end: 20150615
  24. OCRELIZUMAB. [Suspect]
     Active Substance: OCRELIZUMAB
     Dosage: WEEK 72
     Route: 042
     Dates: start: 20140605, end: 20140605
  25. LOPERAMIDE [Concomitant]
     Active Substance: LOPERAMIDE
     Indication: DIARRHOEA
     Route: 048
     Dates: start: 20180326, end: 20180402
  26. IMODIUM [Concomitant]
     Active Substance: LOPERAMIDE HYDROCHLORIDE
     Indication: DIARRHOEA
     Route: 048
     Dates: start: 20150602, end: 20150615
  27. IMODIUM [Concomitant]
     Active Substance: LOPERAMIDE HYDROCHLORIDE
     Route: 065
     Dates: start: 20180504, end: 20180625
  28. OCRELIZUMAB. [Suspect]
     Active Substance: OCRELIZUMAB
     Indication: RELAPSING-REMITTING MULTIPLE SCLEROSIS
     Dosage: WEEK 1?ADMINISTERED ON DAY 1 OF CYCLE 1, FOLLOWED BY SINGLE INFUSION FOR THREE SUBSEQUENT 24-WEEK CY
     Route: 042
     Dates: start: 20130116, end: 20130116
  29. CETIRIZINE DIHYDROCHLORIDE [Concomitant]
     Active Substance: CETIRIZINE HYDROCHLORIDE
     Indication: PREMEDICATION
     Dosage: SUBSEQUENTLY RECEIVED ON 13/JAN/2015
     Route: 065
     Dates: start: 20141230
  30. RIFAXIMIN. [Concomitant]
     Active Substance: RIFAXIMIN
     Indication: DIARRHOEA
     Route: 048
     Dates: start: 20150602, end: 20150602
  31. LOPERAMIDE [Concomitant]
     Active Substance: LOPERAMIDE
     Route: 048
     Dates: start: 20180326, end: 20180331
  32. OCRELIZUMAB. [Suspect]
     Active Substance: OCRELIZUMAB
     Dosage: WEEK 2?ADMINISTERED ON DAY 15 OF CYCLE 1, FOLLOWED BY SINGLE INFUSION FOR THREE SUBSEQUENT 24-WEEK C
     Route: 042
     Dates: start: 20130214, end: 20130214
  33. OCRELIZUMAB. [Suspect]
     Active Substance: OCRELIZUMAB
     Dosage: WEEK 48
     Route: 042
     Dates: start: 20131218, end: 20131218
  34. PARACETAMOL [Concomitant]
     Active Substance: ACETAMINOPHEN
     Indication: PREMEDICATION
     Dosage: SUBSEQUENTLY RECEIVED ON 14/FEB/2013, 02/JUL/2013, 18/DEC/2013, 05/JUN/2014, 30/DEC/2014, 13/JAN/201
     Route: 065
     Dates: start: 20130116
  35. CIPRO [Concomitant]
     Active Substance: CIPROFLOXACIN HYDROCHLORIDE
     Indication: DIARRHOEA
     Route: 048
     Dates: start: 20150605, end: 20150615

REACTIONS (2)
  - Diarrhoea [Recovered/Resolved]
  - Dehydration [Recovered/Resolved]

NARRATIVE: CASE EVENT DATE: 20180504
